FAERS Safety Report 23743509 (Version 1)
Quarter: 2024Q2

REPORT INFORMATION
  Report Type: Spontaneous
  Country: US (occurrence: None)
  Receive Date: 20240413
  Receipt Date: 20240413
  Transmission Date: 20240716
  Serious: Yes (Disabling)
  Sender: FDA-Public Use
  Company Number: None

PATIENT
  Age: 35 Year
  Sex: Female
  Weight: 58.5 kg

DRUGS (2)
  1. VIVITROL [Suspect]
     Active Substance: NALTREXONE
     Indication: Hallucination, auditory
     Dosage: FREQUENCY : MONTHLY;?
     Route: 058
     Dates: start: 20240411
  2. GABAPENTIN [Concomitant]
     Active Substance: GABAPENTIN

REACTIONS (13)
  - Somnolence [None]
  - Tremor [None]
  - Muscle twitching [None]
  - Heart rate increased [None]
  - Muscular weakness [None]
  - Gait disturbance [None]
  - Movement disorder [None]
  - Feeling abnormal [None]
  - Injection site induration [None]
  - Injection site swelling [None]
  - Injection site discolouration [None]
  - Skin swelling [None]
  - Pain in extremity [None]

NARRATIVE: CASE EVENT DATE: 20240411
